FAERS Safety Report 9705677 (Version 2)
Quarter: 2013Q4

REPORT INFORMATION
  Report Type: Spontaneous
  Country: US (occurrence: US)
  Receive Date: 20131122
  Receipt Date: 20131122
  Transmission Date: 20140711
  Serious: No
  Sender: FDA-Public Use
  Company Number: US-GILEAD-2008-0017275

PATIENT
  Sex: Female
  Weight: 77.11 kg

DRUGS (15)
  1. LETAIRIS [Suspect]
     Indication: PULMONARY ARTERIAL HYPERTENSION
  2. PRISTIQ [Concomitant]
  3. OXYGEN [Concomitant]
     Dates: start: 20050321
  4. TRAMADOL/ACETAMINOPHEN [Concomitant]
     Dates: start: 20050821
  5. VITAMIN B12 [Concomitant]
     Dates: start: 20050321
  6. ALPRAZOLAM [Concomitant]
     Dates: start: 20070103
  7. FOLIC ACID [Concomitant]
     Dates: start: 20050321
  8. FUROSEMIDE [Concomitant]
     Dates: start: 20050321
  9. GABAPENTIN [Concomitant]
     Dates: start: 20070604
  10. LEVOTHYROXINE [Concomitant]
     Dates: start: 20050321
  11. LOPERAMIDE [Concomitant]
     Dates: start: 20050321
  12. PROSTACYCLIN [Concomitant]
     Dosage: 32 NG/KG/MIN
     Dates: start: 20070827
  13. SILDENAFIL CITRATE [Concomitant]
     Dates: start: 20080403
  14. SPIRONOLACTONE [Concomitant]
     Dates: start: 20061025
  15. WARFARIN [Concomitant]
     Dosage: MWF
     Dates: start: 20070103

REACTIONS (2)
  - Pain in extremity [Recovered/Resolved]
  - Flushing [Recovered/Resolved]
